FAERS Safety Report 11821292 (Version 1)
Quarter: 2015Q4

REPORT INFORMATION
  Report Type: Spontaneous
  Country: US (occurrence: US)
  Receive Date: 20151210
  Receipt Date: 20151210
  Transmission Date: 20160305
  Serious: No
  Sender: FDA-Public Use
  Company Number: US-JNJFOC-20150812732

PATIENT
  Age: 62 Year
  Sex: Female

DRUGS (4)
  1. NEXIUM [Concomitant]
     Active Substance: ESOMEPRAZOLE MAGNESIUM
  2. IMBRUVICA [Suspect]
     Active Substance: IBRUTINIB
     Indication: WALDENSTROM^S MACROGLOBULINAEMIA
     Route: 048
     Dates: start: 20150714
  3. LEVOXYL [Concomitant]
     Active Substance: LEVOTHYROXINE SODIUM
  4. PRILOSEC [Concomitant]
     Active Substance: OMEPRAZOLE MAGNESIUM

REACTIONS (3)
  - Muscle spasms [Unknown]
  - Urine odour abnormal [Unknown]
  - Dizziness postural [Unknown]

NARRATIVE: CASE EVENT DATE: 201507
